FAERS Safety Report 14728504 (Version 2)
Quarter: 2018Q2

REPORT INFORMATION
  Report Type: Spontaneous
  Country: US (occurrence: US)
  Receive Date: 20180406
  Receipt Date: 20180409
  Transmission Date: 20180711
  Serious: No
  Sender: FDA-Public Use
  Company Number: US-009507513-1804USA002994

PATIENT
  Age: 29 Year
  Sex: Female

DRUGS (1)
  1. NEXPLANON [Suspect]
     Active Substance: ETONOGESTREL
     Indication: CONTRACEPTION
     Dosage: 1 ROD IN UPPER LEFT ARM
     Route: 059
     Dates: start: 201707, end: 20180322

REACTIONS (2)
  - Device breakage [Recovered/Resolved]
  - Device expulsion [Recovered/Resolved]
